FAERS Safety Report 18485238 (Version 1)
Quarter: 2020Q4

REPORT INFORMATION
  Report Type: Spontaneous
  Country: US (occurrence: US)
  Receive Date: 20201110
  Receipt Date: 20201110
  Transmission Date: 20210114
  Serious: No
  Sender: FDA-Public Use
  Company Number: US-BEH-2020124781

PATIENT
  Age: 43 Year
  Sex: Female

DRUGS (1)
  1. HIZENTRA [Suspect]
     Active Substance: HUMAN IMMUNOGLOBULIN G
     Indication: CHRONIC INFLAMMATORY DEMYELINATING POLYRADICULONEUROPATHY
     Dosage: 29 GRAM, QW
     Route: 058
     Dates: start: 20200729

REACTIONS (2)
  - Infusion site pruritus [Unknown]
  - Infusion site pain [Unknown]

NARRATIVE: CASE EVENT DATE: 20201002
